FAERS Safety Report 7059991-5 (Version None)
Quarter: 2010Q4

REPORT INFORMATION
  Report Type: 
  Country: None (occurrence: None)
  Receive Date: 20101025
  Receipt Date: 20101015
  Transmission Date: 20110411
  Serious: Yes (Hospitalization)
  Sender: FDA-Public Use
  Company Number: JP-ROCHE-621204

PATIENT
  Sex: Female

DRUGS (8)
  1. TOCILIZUMAB [Suspect]
     Indication: RHEUMATOID ARTHRITIS
     Route: 041
     Dates: start: 20081106, end: 20081106
  2. TOCILIZUMAB [Suspect]
     Route: 041
     Dates: start: 20081204, end: 20081204
  3. TOCILIZUMAB [Suspect]
     Route: 041
     Dates: start: 20090106, end: 20090106
  4. TOCILIZUMAB [Suspect]
     Route: 041
     Dates: start: 20090226, end: 20090226
  5. TOCILIZUMAB [Suspect]
     Route: 041
     Dates: start: 20090324, end: 20090324
  6. TOCILIZUMAB [Suspect]
     Route: 041
     Dates: start: 20090428
  7. TACROLIMUS [Concomitant]
     Dosage: DRUG: TACROLIMUS HYDRATE(TACROLIMUS HYDRATE)
     Route: 048
     Dates: end: 20090203
  8. PREDNISOLONE [Concomitant]
     Dosage: FORM: PERORAL AGENT
     Route: 048

REACTIONS (1)
  - EMBOLIC CEREBRAL INFARCTION [None]
